FAERS Safety Report 7763956-5 (Version None)
Quarter: 2011Q3

REPORT INFORMATION
  Report Type: 
  Country: None (occurrence: None)
  Receive Date: 20110916
  Receipt Date: 20110902
  Transmission Date: 20111222
  Serious: Yes (Other)
  Sender: FDA-Public Use
  Company Number: 2011MA013247

PATIENT
  Age: 76 Year
  Sex: Male

DRUGS (9)
  1. FINASTERIDE [Suspect]
     Dosage: 5 MG;PO
     Route: 048
     Dates: start: 20091127
  2. SIMVASTATIN [Suspect]
     Dosage: 40 MG;QD;
     Dates: start: 20110704
  3. CANDESARTAN CILEXETIL [Suspect]
  4. SENNA (SENNA ALEXANDRINA) [Suspect]
     Dosage: 7.5 MG;
  5. ASPIRIN [Suspect]
     Dosage: 75 MG;PO
     Route: 048
     Dates: start: 20110517
  6. TAMSULOSIN HCL [Suspect]
  7. LOSARTAN POTASSIUM [Suspect]
     Dosage: 100 MG;QD;
  8. UNSPECIFIED BETA BLOCKER (NO PREF. NAME) [Suspect]
  9. FLECAINIDE ACETATE [Concomitant]

REACTIONS (10)
  - VENTRICULAR EXTRASYSTOLES [None]
  - HAEMATURIA [None]
  - DRUG INTERACTION [None]
  - ATRIOVENTRICULAR BLOCK FIRST DEGREE [None]
  - CARDIAC VALVE DISEASE [None]
  - PALPITATIONS [None]
  - DIZZINESS POSTURAL [None]
  - RENAL CYST [None]
  - LOSS OF CONSCIOUSNESS [None]
  - BLADDER TRABECULATION [None]
